FAERS Safety Report 4684702-8 (Version None)
Quarter: 2005Q2

REPORT INFORMATION
  Report Type: 
  Country: None (occurrence: None)
  Receive Date: 20050531
  Receipt Date: 20050207
  Transmission Date: 20051028
  Serious: Yes (Death)
  Sender: FDA-Public Use
  Company Number: USA050290067

PATIENT
  Age: 86 Year
  Sex: Female

DRUGS (2)
  1. ZYPREXA [Suspect]
     Indication: HALLUCINATION, VISUAL
     Dosage: 10 MG DAY
     Dates: start: 20031001
  2. BLOOD PRESSURE MEDICINE [Concomitant]

REACTIONS (1)
  - CEREBROVASCULAR ACCIDENT [None]
